FAERS Safety Report 5266210-9 (Version None)
Quarter: 2007Q1

REPORT INFORMATION
  Report Type: 
  Country: None (occurrence: None)
  Receive Date: 20070315
  Receipt Date: 20070313
  Transmission Date: 20070707
  Serious: Yes (Hospitalization)
  Sender: FDA-Public Use
  Company Number: US-GLAXOSMITHKLINE-A0643070A

PATIENT
  Age: 58 Year
  Sex: Male

DRUGS (23)
  1. WELLBUTRIN [Suspect]
     Indication: DRUG USE FOR UNKNOWN INDICATION
     Dosage: 1200MG PER DAY
     Route: 048
  2. ROZEREM [Concomitant]
  3. PROVIGIL [Concomitant]
  4. AVODART [Concomitant]
  5. ZOCOR [Concomitant]
  6. AGGRENOX [Concomitant]
  7. ZANTAC [Concomitant]
  8. REGLAN [Concomitant]
  9. COZAAR [Concomitant]
  10. TRICOR [Concomitant]
  11. FOLIC ACID [Concomitant]
  12. AMPHETAMINES [Concomitant]
  13. FISH OIL [Concomitant]
  14. ATROVENT [Concomitant]
  15. ABILIFY [Concomitant]
  16. DIGOXIN [Concomitant]
  17. LANTUS [Concomitant]
  18. NOVOLOG [Concomitant]
  19. LAMICTAL [Concomitant]
  20. COREG [Concomitant]
  21. ADDERALL XR 10 [Concomitant]
  22. ASPIRIN [Concomitant]
  23. UNSPECIFIED MEDICATION [Concomitant]

REACTIONS (2)
  - OVERDOSE [None]
  - TRANSIENT ISCHAEMIC ATTACK [None]
